FAERS Safety Report 5881534-X (Version None)
Quarter: 2008Q3

REPORT INFORMATION
  Report Type: 
  Country: None (occurrence: None)
  Receive Date: 20080911
  Receipt Date: 20080828
  Transmission Date: 20090109
  Serious: Yes (Death, Other)
  Sender: FDA-Public Use
  Company Number: SYMT20060002

PATIENT
  Age: 9 Year
  Sex: Male

DRUGS (3)
  1. SYMMETREL [Suspect]
     Indication: INFLUENZA IMMUNISATION
     Dosage: 100 MG, BID, PER ORAL
     Route: 048
     Dates: end: 20060119
  2. SYMMETREL [Suspect]
     Indication: NEUROMYOPATHY
     Dosage: 100 MG, BID, PER ORAL
     Route: 048
     Dates: end: 20060119
  3. TRAZODONE HCL [Suspect]
     Indication: AUTISM
     Dates: end: 20060119

REACTIONS (7)
  - ACCIDENTAL OVERDOSE [None]
  - AGITATION [None]
  - DRUG TOXICITY [None]
  - DYSKINESIA [None]
  - LOSS OF CONSCIOUSNESS [None]
  - NERVOUSNESS [None]
  - SLEEP DISORDER [None]
